FAERS Safety Report 12654058 (Version 2)
Quarter: 2016Q3

REPORT INFORMATION
  Report Type: Report from Study
  Country: FR (occurrence: FR)
  Receive Date: 20160816
  Receipt Date: 20160916
  Transmission Date: 20161109
  Serious: Yes (Hospitalization, Other)
  Sender: FDA-Public Use
  Company Number: FR-BRISTOL-MYERS SQUIBB COMPANY-BMS-2016-065144

PATIENT
  Age: 62 Year
  Sex: Female

DRUGS (29)
  1. SOFOSBUVIR [Suspect]
     Active Substance: SOFOSBUVIR
     Indication: HEPATITIS C
     Dosage: 400 MG, 3 TIMES/WK
     Route: 065
     Dates: start: 20160502
  2. VIREAD [Suspect]
     Active Substance: TENOFOVIR DISOPROXIL FUMARATE
     Indication: HEPATITIS B
     Dosage: 16.5 MG, 3 TIMES/WK
     Route: 065
     Dates: start: 20160502
  3. TEMERIT [Concomitant]
     Active Substance: NEBIVOLOL
     Indication: HYPERTENSION
     Dosage: 5 MG, QD
     Route: 065
     Dates: start: 2010
  4. TOCO [Concomitant]
     Active Substance: UNSPECIFIED INGREDIENT
     Indication: VITAMIN E DEFICIENCY
     Dosage: 500 MG, QD
     Route: 065
     Dates: start: 2005
  5. LEVOCARNIL                         /00878601/ [Concomitant]
     Indication: PRODUCT USED FOR UNKNOWN INDICATION
     Dosage: 100 MG, QWK
     Route: 065
     Dates: start: 20150917
  6. PLAVIX PLUS [Concomitant]
     Indication: ANTIPLATELET THERAPY
     Dosage: 75 MG, QD
     Route: 065
     Dates: start: 20151223
  7. NEBIVOLOL. [Concomitant]
     Active Substance: NEBIVOLOL
     Indication: HYPERTENSION
     Dosage: 5 MG, QD
     Route: 065
     Dates: start: 201512
  8. COUMADINE [Concomitant]
     Active Substance: WARFARIN SODIUM
     Indication: PRODUCT USED FOR UNKNOWN INDICATION
     Dosage: 2 MG, UNK
     Route: 065
     Dates: start: 2013
  9. NEUROTIN                           /00949202/ [Concomitant]
     Active Substance: ACETYLCARNITINE HYDROCHLORIDE
     Indication: CARPAL TUNNEL SYNDROME
     Dosage: 100 MG, TID
     Route: 065
     Dates: start: 2013
  10. VENOFER [Concomitant]
     Active Substance: IRON SUCROSE
     Indication: IRON DEFICIENCY
     Dosage: 1 DF, QWK
     Route: 065
     Dates: start: 20160119
  11. SODIUM BICARBONATE. [Concomitant]
     Active Substance: SODIUM BICARBONATE
     Indication: VITAMIN E DEFICIENCY
     Dosage: 500 MG, QD
     Route: 065
     Dates: start: 20140827
  12. DACLATASVIR DIHYDROCHLORIDE [Suspect]
     Active Substance: DACLATASVIR DIHYDROCHLORIDE
     Indication: HEPATITIS C
     Dosage: 60 MG, QD
     Route: 065
     Dates: start: 20160502
  13. KARDEGIC [Concomitant]
     Active Substance: ASPIRIN LYSINE
     Indication: ANTIPLATELET THERAPY
     Dosage: 75 MG, QD
     Route: 065
     Dates: start: 201410, end: 201512
  14. KAYEXALATE [Concomitant]
     Active Substance: SODIUM POLYSTYRENE SULFONATE
     Indication: HYPERKALAEMIA
     Dosage: UNK
     Route: 065
     Dates: start: 2003
  15. RENVELA [Concomitant]
     Active Substance: SEVELAMER CARBONATE
     Indication: HYPERPHOSPHATAEMIA
     Dosage: 800 MG, BID
     Route: 065
     Dates: start: 2005
  16. EPO                                /00909301/ [Concomitant]
     Active Substance: ERYTHROPOIETIN
     Indication: ANAEMIA
     Dosage: 130 ?G, QWK
     Route: 065
     Dates: start: 20160420
  17. LERCAN [Concomitant]
     Active Substance: LERCANIDIPINE
     Indication: HYPERTENSION
     Dosage: 10 MG, QD
     Route: 065
     Dates: start: 20151223
  18. PANTOPRAZOLE [Concomitant]
     Active Substance: PANTOPRAZOLE SODIUM
     Indication: GASTROOESOPHAGEAL REFLUX DISEASE
     Dosage: 40 MG, BID
     Route: 065
     Dates: start: 20151231
  19. LAROSCORBINE [Concomitant]
     Active Substance: ASCORBIC ACID
     Indication: FATIGUE
     Dosage: 500 MG, Q3WK
     Route: 065
     Dates: start: 20160118
  20. CALCIPARINE [Concomitant]
     Active Substance: HEPARIN CALCIUM
     Indication: THROMBOSIS PROPHYLAXIS
     Dosage: 5000 U, QD
     Route: 065
     Dates: start: 20151223
  21. MIMPARA [Concomitant]
     Active Substance: CINACALCET HYDROCHLORIDE
     Indication: HYPERPARATHYROIDISM
     Dosage: 30 MG, QD
     Route: 065
     Dates: start: 2011
  22. UVEDOSE [Concomitant]
     Active Substance: CHOLECALCIFEROL
     Indication: VITAMIN D DEFICIENCY
     Dosage: 100 U, QMO
     Route: 065
     Dates: start: 20150820
  23. TRAMADOL. [Concomitant]
     Active Substance: TRAMADOL
     Indication: PAIN
     Dosage: 50 MG, BID
     Route: 065
     Dates: start: 20150518
  24. FRESUBIN                           /07459901/ [Concomitant]
     Indication: PRODUCT USED FOR UNKNOWN INDICATION
     Dosage: 1200 MG, QD
     Route: 065
     Dates: start: 20151028
  25. GAVISCON                           /00237601/ [Concomitant]
     Active Substance: ALUMINUM HYDROXIDE\MAGNESIUM CARBONATE
     Indication: GASTROOESOPHAGEAL REFLUX DISEASE
     Dosage: UNK
     Route: 065
     Dates: start: 2005
  26. MOPRAL                             /00661201/ [Concomitant]
     Active Substance: OMEPRAZOLE SODIUM
     Indication: GASTROOESOPHAGEAL REFLUX DISEASE
     Dosage: 20 MG, QD
     Route: 065
     Dates: start: 2005, end: 20151223
  27. NATISPRAY [Concomitant]
     Active Substance: NITROGLYCERIN
     Indication: PAIN
     Dosage: 0.15 MG, QD
     Route: 065
     Dates: start: 2004
  28. ATORVASTATINE                      /01326101/ [Concomitant]
     Active Substance: ATORVASTATIN
     Indication: CARDIOVASCULAR DISORDER
     Dosage: 10 MG, QD
     Route: 065
     Dates: start: 201410
  29. SPECIAFOLDINE [Concomitant]
     Active Substance: FOLIC ACID
     Indication: ANAEMIA
     Dosage: 5 MG, BID
     Route: 065

REACTIONS (2)
  - Sepsis [Unknown]
  - Streptococcal bacteraemia [Unknown]

NARRATIVE: CASE EVENT DATE: 20160620
